FAERS Safety Report 12569047 (Version 1)
Quarter: 2016Q3

REPORT INFORMATION
  Report Type: Spontaneous
  Country: HR (occurrence: HR)
  Receive Date: 20160719
  Receipt Date: 20160719
  Transmission Date: 20161109
  Serious: Yes (Other)
  Sender: FDA-Public Use
  Company Number: HR-BAYER-2016-137987

PATIENT
  Age: 14 Year
  Sex: Female

DRUGS (4)
  1. CLARITINE [Suspect]
     Active Substance: LORATADINE
     Route: 048
     Dates: start: 20160116, end: 20160116
  2. ANDOL [Suspect]
     Active Substance: ASPIRIN
     Dosage: UNK
     Route: 048
     Dates: start: 20160116, end: 20160116
  3. MONOPINA [Suspect]
     Active Substance: AMLODIPINE BESYLATE
     Dosage: 4 MG, UNK
     Route: 048
     Dates: start: 20160116, end: 20160116
  4. RANITIDIN SANDOZ [Suspect]
     Active Substance: RANITIDINE HYDROCHLORIDE
     Dosage: 150 MG, UNK
     Route: 048
     Dates: start: 20160116, end: 20160116

REACTIONS (4)
  - Intentional overdose [Unknown]
  - Suicide attempt [Unknown]
  - Toxicity to various agents [None]
  - No adverse event [Unknown]

NARRATIVE: CASE EVENT DATE: 20160116
